FAERS Safety Report 16072330 (Version 1)
Quarter: 2019Q1

REPORT INFORMATION
  Report Type: Spontaneous
  Country: US (occurrence: US)
  Receive Date: 20190314
  Receipt Date: 20190314
  Transmission Date: 20190418
  Serious: No
  Sender: FDA-Public Use
  Company Number: US-ALLERGAN-1900354US

PATIENT
  Age: 53 Year
  Sex: Female
  Weight: 40.82 kg

DRUGS (3)
  1. CANASA [Suspect]
     Active Substance: MESALAMINE
     Indication: COLITIS ULCERATIVE
     Dosage: HALF THE DOSE
     Route: 054
  2. CANASA [Suspect]
     Active Substance: MESALAMINE
     Dosage: 1 DF, QHS
     Route: 054
     Dates: start: 20190101, end: 20190102
  3. CORTISONE [Concomitant]
     Active Substance: CORTISONE\HYDROCORTISONE
     Dosage: UNK

REACTIONS (6)
  - Off label use [Unknown]
  - Fatigue [Recovering/Resolving]
  - Lethargy [Recovering/Resolving]
  - Asthenia [Recovering/Resolving]
  - Wrong technique in product usage process [Unknown]
  - Vomiting [Recovering/Resolving]

NARRATIVE: CASE EVENT DATE: 201901
